FAERS Safety Report 17888542 (Version 1)
Quarter: 2020Q2

REPORT INFORMATION
  Report Type: Spontaneous
  Country: US (occurrence: US)
  Receive Date: 20200611
  Receipt Date: 20200611
  Transmission Date: 20200714
  Serious: No
  Sender: FDA-Public Use
  Company Number: None

PATIENT
  Age: 60 Year
  Sex: Female
  Weight: 69.3 kg

DRUGS (9)
  1. ASPIRIN 81MG [Concomitant]
     Active Substance: ASPIRIN
  2. DIAZEPAM 5MG [Concomitant]
     Active Substance: DIAZEPAM
  3. NORCO 7.5-325MG [Concomitant]
  4. RITUXAN [Concomitant]
     Active Substance: RITUXIMAB
  5. SENNA LAXATIVE [Concomitant]
     Active Substance: SENNOSIDES
  6. VITAMIN B12 [Concomitant]
     Active Substance: CYANOCOBALAMIN
  7. KISQALI [Suspect]
     Active Substance: RIBOCICLIB
     Indication: BREAST CANCER FEMALE
     Route: 048
     Dates: start: 20200424
  8. KEPPRA [Concomitant]
     Active Substance: LEVETIRACETAM
  9. ACETAMINOPHEN 325MG [Concomitant]

REACTIONS (2)
  - Constipation [None]
  - Faeces hard [None]

NARRATIVE: CASE EVENT DATE: 20200611
